FAERS Safety Report 8351132-7 (Version None)
Quarter: 2012Q2

REPORT INFORMATION
  Report Type: 
  Country: None (occurrence: None)
  Receive Date: 20120510
  Receipt Date: 20120503
  Transmission Date: 20120825
  Serious: Yes (Hospitalization, Other)
  Sender: FDA-Public Use
  Company Number: BR-BAYER-2012-003119

PATIENT
  Age: 73 Year
  Sex: Male

DRUGS (7)
  1. NEXAVAR [Suspect]
     Indication: HEPATIC NEOPLASM MALIGNANT
     Dosage: 200 MG, QD
     Route: 048
     Dates: start: 20090506, end: 20090508
  2. GALENIC FORMULA [Concomitant]
     Indication: GASTROINTESTINAL DISORDER
     Dosage: 4 DF, QD
     Route: 048
  3. TENOFOVIR [Concomitant]
     Indication: HEPATIC NEOPLASM MALIGNANT
     Dosage: UNK
     Route: 048
     Dates: start: 20090106
  4. LAMIVUDINE (EPIVIR HBV) [Concomitant]
     Indication: HEPATIC NEOPLASM MALIGNANT
     Dosage: UNK
     Route: 048
     Dates: start: 20030430
  5. NEXAVAR [Suspect]
     Dosage: 200 MG, QD
     Dates: start: 20090516, end: 20090521
  6. NEXAVAR [Suspect]
     Dosage: 400 MG, BID
     Route: 048
     Dates: start: 20110426
  7. NEXAVAR [Suspect]
     Dosage: 200 MG, BID
     Route: 048
     Dates: start: 20090522, end: 20110725

REACTIONS (8)
  - INGUINAL HERNIA [None]
  - DECREASED APPETITE [None]
  - HEPATIC NEOPLASM [None]
  - PHARYNGITIS [None]
  - ORCHITIS [None]
  - URINARY TRACT INFECTION [None]
  - LIVER DISORDER [None]
  - NAUSEA [None]
